FAERS Safety Report 8291857 (Version 2)
Quarter: 2013Q2

REPORT INFORMATION
  Report Type: Spontaneous
  Country: None (occurrence: None)
  Receive Date: 20111208
  Receipt Date: 20130614
  Transmission Date: 20140414
  Serious: Yes (Hospitalization, Other)
  Sender: FDA-Public Use
  Company Number: AUR-APL-2011-05508

PATIENT
  Age: 57 Year
  Sex: Female

DRUGS (12)
  1. FLUOXETINE [Suspect]
     Indication: PRODUCT USED FOR UNKNOWN INDICATION
  2. FENTANYL [Suspect]
     Indication: INDUCTION AND MAINTENANCE OF ANAESTHESIA
     Dosage: (1 UG/KG), INTRAVENOUS
     Route: 042
  3. FENTANYL [Suspect]
     Indication: PAIN
     Dosage: (1 UG/KG), INTRAVENOUS
     Route: 042
  4. METOPROLOL (METOPROLOL) [Concomitant]
  5. THIOPENTONE SODIUM (THIOPENTAL SODIUM)? [Concomitant]
  6. MIDAZOLAM (MIDAZOLAM) [Concomitant]
  7. ROCURONIUM (ROCURONIUM) [Concomitant]
  8. PANCURONTIUM (PANCURONIUM) [Concomitant]
  9. MORPHINE SULFATE (MORPHINE SULFATE) [Concomitant]
  10. NITROGLYCERIN (GLYCERYL TRINITRATE) [Concomitant]
  11. PHENERGAN (PROMETHAZINE) [Concomitant]
  12. DIAZEPAM (DIAZEPAM) [Concomitant]

REACTIONS (13)
  - SEROTONIN SYNDROME [None]
  - CHEST PAIN [None]
  - HYPERHIDROSIS [None]
  - TACHYPNOEA [None]
  - HEART RATE INCREASED [None]
  - BLOOD PRESSURE INCREASED [None]
  - CORONARY ARTERY DISEASE [None]
  - CORONARY ARTERY OCCLUSION [None]
  - AGITATION [None]
  - MYOCLONUS [None]
  - HEADACHE [None]
  - NAUSEA [None]
  - VOMITING [None]
